FAERS Safety Report 16225036 (Version 8)
Quarter: 2019Q4

REPORT INFORMATION
  Report Type: Spontaneous
  Country: JP (occurrence: JP)
  Receive Date: 20190422
  Receipt Date: 20191004
  Transmission Date: 20200122
  Serious: Yes (Death, Hospitalization, Other)
  Sender: FDA-Public Use
  Company Number: JP-009507513-1904JPN001477J

PATIENT
  Age: 73 Year
  Sex: Male
  Weight: 57 kg

DRUGS (12)
  1. EMEND [Suspect]
     Active Substance: APREPITANT
     Indication: NON-SMALL CELL LUNG CANCER
     Dosage: 125 MILLIGRAM, Q3W
     Route: 065
     Dates: start: 20190315, end: 20190315
  2. RESLIN TABLETS 25 [Suspect]
     Active Substance: TRAZODONE HYDROCHLORIDE
     Dosage: 25 MILLIGRAM, QD
     Route: 048
     Dates: end: 20190330
  3. SULBACILLIN [Concomitant]
     Active Substance: AMPICILLIN SODIUM\SULBACTAM SODIUM
     Indication: INFECTION
     Dosage: 3 GRAM, TID
     Route: 041
     Dates: start: 20190328, end: 20190401
  4. KEYTRUDA [Suspect]
     Active Substance: PEMBROLIZUMAB
     Indication: NON-SMALL CELL LUNG CANCER
     Dosage: 200 MILLIGRAM, Q3W
     Route: 041
     Dates: start: 20190315, end: 20190315
  5. PACLITAXEL. [Suspect]
     Active Substance: PACLITAXEL
     Indication: NON-SMALL CELL LUNG CANCER
     Dosage: 163.4 MILLIGRAM, QW
     Route: 041
     Dates: start: 20190315, end: 20190322
  6. MAGNESIUM OXIDE. [Suspect]
     Active Substance: MAGNESIUM OXIDE
     Dosage: 330 MILLIGRAM, TID
     Route: 048
     Dates: end: 20190330
  7. TAKECAB [Suspect]
     Active Substance: VONOPRAZAN FUMURATE
     Dosage: 10 MILLIGRAM, QD
     Route: 048
     Dates: end: 20190330
  8. JANUVIA [Suspect]
     Active Substance: SITAGLIPTIN PHOSPHATE
     Dosage: 25 MILLIGRAM, QD
     Route: 048
     Dates: end: 20190330
  9. CARBOPLATIN. [Suspect]
     Active Substance: CARBOPLATIN
     Indication: NON-SMALL CELL LUNG CANCER
     Dosage: 597.6 MILLIGRAM, Q3W
     Route: 041
     Dates: start: 20190315, end: 20190315
  10. EMEND [Suspect]
     Active Substance: APREPITANT
     Dosage: 80 MILLIGRAM, TWICE Q3Q
     Route: 065
     Dates: start: 20190316, end: 20190317
  11. QUAZEPAM. [Suspect]
     Active Substance: QUAZEPAM
     Dosage: 15 MILLIGRAM, QD
     Route: 048
     Dates: end: 20190330
  12. CLARITIN [Suspect]
     Active Substance: LORATADINE
     Dosage: 10 MILLIGRAM, QD
     Route: 048
     Dates: end: 20190330

REACTIONS (2)
  - Somnolence [Unknown]
  - Interstitial lung disease [Fatal]

NARRATIVE: CASE EVENT DATE: 20190328
